FAERS Safety Report 15795247 (Version 1)
Quarter: 2019Q1

REPORT INFORMATION
  Report Type: Spontaneous
  Country: US (occurrence: US)
  Receive Date: 20190107
  Receipt Date: 20190107
  Transmission Date: 20190417
  Serious: Yes (Other)
  Sender: FDA-Public Use
  Company Number: None

PATIENT
  Age: 40 Year
  Sex: Female
  Weight: 50.4 kg

DRUGS (2)
  1. DAILY VITAMIN [Concomitant]
     Active Substance: VITAMINS
  2. CIPROFLOXACIN OTIC [Suspect]
     Active Substance: CIPROFLOXACIN HYDROCHLORIDE
     Indication: EAR INFECTION
     Dosage: ?          QUANTITY:2 DROP(S);?
     Route: 001
     Dates: start: 20190102, end: 20190104

REACTIONS (7)
  - Hallucination [None]
  - Suicidal ideation [None]
  - Disorientation [None]
  - Nightmare [None]
  - Depression [None]
  - Paranoia [None]
  - Confusional state [None]

NARRATIVE: CASE EVENT DATE: 20190105
